FAERS Safety Report 9434862 (Version 1)
Quarter: 2013Q3

REPORT INFORMATION
  Report Type: Report from Study
  Country: CA (occurrence: CA)
  Receive Date: 20130801
  Receipt Date: 20130801
  Transmission Date: 20140515
  Serious: Yes (Other)
  Sender: FDA-Public Use
  Company Number: CA-JNJFOC-20130102962

PATIENT
  Sex: Female

DRUGS (1)
  1. REMICADE [Suspect]
     Indication: EXPOSURE VIA BODY FLUID
     Route: 042

REACTIONS (3)
  - Premature delivery [Unknown]
  - Gestational diabetes [Unknown]
  - Exposure during pregnancy [Recovered/Resolved]
